FAERS Safety Report 7086648-7 (Version None)
Quarter: 2010Q4

REPORT INFORMATION
  Report Type: 
  Country: None (occurrence: None)
  Receive Date: 20101105
  Receipt Date: 20101025
  Transmission Date: 20110411
  Serious: Yes (Death, Hospitalization, Disabling)
  Sender: FDA-Public Use
  Company Number: JP-ABBOTT-10P-087-0671211-00

PATIENT
  Age: 65 Year
  Sex: Male

DRUGS (19)
  1. LEUPROLIDE ACETATE [Suspect]
     Indication: PROSTATE CANCER STAGE IV
     Route: 058
     Dates: start: 20070511, end: 20071026
  2. BICALUTAMIDE [Concomitant]
     Indication: PROSTATE CANCER STAGE IV
     Route: 048
     Dates: end: 20070803
  3. DIOVAN [Concomitant]
     Indication: HYPERTENSION
     Route: 048
     Dates: end: 20080111
  4. 8-HOUR BAYER [Concomitant]
     Indication: ATRIAL FIBRILLATION
     Route: 048
     Dates: end: 20080111
  5. WARFARIN SODIUM [Concomitant]
     Indication: ATRIAL FIBRILLATION
     Route: 048
     Dates: end: 20070903
  6. WARFARIN SODIUM [Concomitant]
     Route: 048
     Dates: start: 20070904, end: 20071210
  7. WARFARIN SODIUM [Concomitant]
     Route: 048
     Dates: start: 20071211, end: 20071228
  8. DIGOSIN [Concomitant]
     Indication: ATRIAL FIBRILLATION
     Route: 048
     Dates: end: 20080111
  9. RIZE [Concomitant]
     Indication: ANXIETY DISORDER
     Route: 048
     Dates: end: 20080114
  10. CYANOCOBALAMIN [Concomitant]
     Indication: DEAFNESS
     Route: 048
     Dates: end: 20080114
  11. AVISHOT [Concomitant]
     Indication: BENIGN PROSTATIC HYPERPLASIA
     Route: 048
     Dates: end: 20071228
  12. DECADRON [Concomitant]
     Indication: PROSTATE CANCER STAGE IV
     Route: 048
     Dates: start: 20070820, end: 20071109
  13. DECADRON [Concomitant]
     Route: 048
     Dates: start: 20071110, end: 20071228
  14. DECADRON [Concomitant]
     Route: 048
     Dates: start: 20071231, end: 20080123
  15. DECADRON [Concomitant]
     Route: 048
     Dates: start: 20080124, end: 20080211
  16. ZOMETA [Concomitant]
     Indication: PROSTATE CANCER STAGE IV
     Route: 042
     Dates: start: 20071211, end: 20071211
  17. SOLU-CORTEF [Concomitant]
     Indication: PROSTATE CANCER STAGE IV
     Route: 042
     Dates: start: 20071229, end: 20071229
  18. ESTRAMUSTINE PHOSPHATE SODIUM [Concomitant]
     Indication: PROSTATE CANCER STAGE IV
     Route: 048
     Dates: start: 20071109, end: 20080111
  19. PREDNISOLONE [Concomitant]
     Indication: PROSTATE CANCER STAGE IV
     Route: 042
     Dates: start: 20071230, end: 20071230

REACTIONS (5)
  - CANCER PAIN [None]
  - CONSTIPATION [None]
  - DYSPHAGIA [None]
  - GASTRIC ULCER [None]
  - PROSTATE CANCER STAGE IV [None]
